FAERS Safety Report 12615846 (Version 4)
Quarter: 2016Q4

REPORT INFORMATION
  Report Type: Spontaneous
  Country: US (occurrence: US)
  Receive Date: 20160802
  Receipt Date: 20161101
  Transmission Date: 20170207
  Serious: Yes (Hospitalization, Other)
  Sender: FDA-Public Use
  Company Number: US-PFIZER INC-2016366509

PATIENT
  Sex: Male
  Weight: 122 kg

DRUGS (1)
  1. VIAGRA [Suspect]
     Active Substance: SILDENAFIL CITRATE
     Indication: ERECTILE DYSFUNCTION
     Dosage: 100 MG, AS NEEDED (1 TABLET AS NEEDED )
     Route: 048

REACTIONS (5)
  - Activities of daily living impaired [Unknown]
  - Back disorder [Unknown]
  - Malaise [Unknown]
  - Arthralgia [Recovered/Resolved]
  - Arthropathy [Recovering/Resolving]
